FAERS Safety Report 5938037-3 (Version None)
Quarter: 2008Q4

REPORT INFORMATION
  Report Type: 
  Country: None (occurrence: None)
  Receive Date: 20081031
  Receipt Date: 20081020
  Transmission Date: 20090506
  Serious: Yes (Hospitalization)
  Sender: FDA-Public Use
  Company Number: FR-PFIZER INC-2008087209

PATIENT
  Age: 49 Year
  Sex: Female

DRUGS (3)
  1. ZOLOFT [Suspect]
     Dates: start: 20080601
  2. AMITRIPTYLINE HCL [Suspect]
     Dates: start: 20080601, end: 20080801
  3. ALPRAZOLAM [Concomitant]
     Dates: start: 20080701, end: 20080801

REACTIONS (3)
  - BRONCHOSPASM [None]
  - EOSINOPHILIA [None]
  - LUNG DISORDER [None]
